FAERS Safety Report 25612934 (Version 1)
Quarter: 2025Q3

REPORT INFORMATION
  Report Type: Spontaneous
  Country: US (occurrence: US)
  Receive Date: 20250728
  Receipt Date: 20250728
  Transmission Date: 20251020
  Serious: No
  Sender: PFIZER
  Company Number: US-PFIZER INC-202500149479

PATIENT
  Age: 74 Year
  Sex: Female

DRUGS (6)
  1. IBRANCE [Interacting]
     Active Substance: PALBOCICLIB
     Indication: Breast cancer metastatic
  2. PHENYTOIN [Interacting]
     Active Substance: PHENYTOIN
     Indication: Seizure
  3. ENZALUTAMIDE [Suspect]
     Active Substance: ENZALUTAMIDE
  4. RIFAMPIN [Suspect]
     Active Substance: RIFAMPIN
  5. CARBAMAZEPINE [Suspect]
     Active Substance: CARBAMAZEPINE
  6. ST. JOHN^S WORT [Suspect]
     Active Substance: ST. JOHN^S WORT

REACTIONS (1)
  - Drug interaction [Unknown]
